FAERS Safety Report 8582386-X (Version None)
Quarter: 2012Q3

REPORT INFORMATION
  Report Type: 
  Country: None (occurrence: None)
  Receive Date: 20120809
  Receipt Date: 20120511
  Transmission Date: 20120928
  Serious: Yes (Hospitalization)
  Sender: FDA-Public Use
  Company Number: US-GLAXOSMITHKLINE-A0977328A

PATIENT
  Age: 67 Year
  Sex: Female

DRUGS (2)
  1. ENALAPRIL MALEATE [Concomitant]
  2. COREG [Suspect]
     Indication: HYPERTENSION
     Dosage: 3.125MG PER DAY
     Route: 048
     Dates: start: 20120201, end: 20120101

REACTIONS (3)
  - THROMBOCYTOPENIA [None]
  - TREATMENT NONCOMPLIANCE [None]
  - RASH [None]
